FAERS Safety Report 4646156-7 (Version None)
Quarter: 2005Q2

REPORT INFORMATION
  Report Type: 
  Country: None (occurrence: None)
  Receive Date: 20050425
  Receipt Date: 20050412
  Transmission Date: 20051028
  Serious: Yes (Other)
  Sender: FDA-Public Use
  Company Number: 2005056713

PATIENT
  Age: 46 Year
  Sex: Male
  Weight: 122.4712 kg

DRUGS (1)
  1. CELEBREX [Suspect]
     Indication: OSTEOARTHRITIS

REACTIONS (9)
  - DRUG INEFFECTIVE [None]
  - EOSINOPHIL COUNT INCREASED [None]
  - FALL [None]
  - MUSCLE RUPTURE [None]
  - NERVE INJURY [None]
  - POST PROCEDURAL COMPLICATION [None]
  - SHOULDER DEFORMITY [None]
  - SPORTS INJURY [None]
  - WEIGHT INCREASED [None]
